FAERS Safety Report 5605794-5 (Version None)
Quarter: 2008Q1

REPORT INFORMATION
  Report Type: 
  Country: None (occurrence: None)
  Receive Date: 20080123
  Receipt Date: 20080110
  Transmission Date: 20080703
  Serious: Yes (Hospitalization)
  Sender: FDA-Public Use
  Company Number: 2008001796

PATIENT
  Age: 53 Year
  Sex: Female

DRUGS (5)
  1. LISTERINE (CINEOLE, MENTHOL, THYMOL) [Suspect]
     Dosage: 25 ML ONCE PER DAY (25 ML, 1 IN 1 D), ORAL
     Route: 048
     Dates: start: 20070727, end: 20070727
  2. KETOPROFEN [Suspect]
     Dosage: UNSPECIFIED, TOPICAL
     Route: 061
     Dates: start: 20070727, end: 20070727
  3. ATENOLOL [Concomitant]
  4. NICARDIPINE (NICARDIPINE HYDROCHLORIDE) [Concomitant]
  5. LEVOTHYROXINE SODIUM [Concomitant]

REACTIONS (11)
  - BLOOD CREATININE INCREASED [None]
  - BURNING SENSATION [None]
  - DRY MOUTH [None]
  - DYSPNOEA [None]
  - HEADACHE [None]
  - LIP OEDEMA [None]
  - OEDEMA MUCOSAL [None]
  - PULMONARY SARCOIDOSIS [None]
  - PYREXIA [None]
  - RENAL DISORDER [None]
  - SALIVARY GLAND MASS [None]
